FAERS Safety Report 23232974 (Version 1)
Quarter: 2023Q4

REPORT INFORMATION
  Report Type: Spontaneous
  Country: FR (occurrence: FR)
  Receive Date: 20231128
  Receipt Date: 20231128
  Transmission Date: 20240110
  Serious: Yes (Hospitalization, Other)
  Sender: FDA-Public Use
  Company Number: None

PATIENT
  Age: 66 Year
  Sex: Male
  Weight: 92 kg

DRUGS (7)
  1. LEUCOVORIN CALCIUM [Suspect]
     Active Substance: LEUCOVORIN CALCIUM
     Indication: Colon cancer
     Dosage: UNKNOWN
     Route: 042
     Dates: start: 20231011, end: 20231011
  2. EMEND [Suspect]
     Active Substance: APREPITANT
     Dosage: 125 MG, QD
     Route: 048
     Dates: start: 20231011, end: 20231011
  3. EMEND [Suspect]
     Active Substance: APREPITANT
     Indication: Nausea
     Dosage: 80 MILLIGRAM, QD
     Route: 048
     Dates: start: 20231012, end: 20231013
  4. FLUOROURACIL [Suspect]
     Active Substance: FLUOROURACIL
     Indication: Colon cancer
     Dosage: UNKNOWN
     Route: 042
     Dates: start: 20231011, end: 20231011
  5. OXALIPLATIN [Suspect]
     Active Substance: OXALIPLATIN
     Indication: Colon cancer
     Dosage: UNKNOWN
     Route: 042
     Dates: start: 20231011, end: 20231011
  6. ACETAMINOPHEN [Concomitant]
     Active Substance: ACETAMINOPHEN
     Indication: Product used for unknown indication
     Dosage: UNKNOWN
     Route: 065
  7. PHLOROGLUCINOL\1,3,5-TRIMETHOXYBENZENE [Concomitant]
     Active Substance: PHLOROGLUCINOL\1,3,5-TRIMETHOXYBENZENE
     Indication: Product used for unknown indication
     Dosage: UNKNOWN
     Route: 065

REACTIONS (1)
  - Pancreatitis acute [Not Recovered/Not Resolved]

NARRATIVE: CASE EVENT DATE: 20231015
